FAERS Safety Report 24805289 (Version 2)
Quarter: 2025Q1

REPORT INFORMATION
  Report Type: Report from Study
  Country: CO (occurrence: CO)
  Receive Date: 20250103
  Receipt Date: 20250106
  Transmission Date: 20250409
  Serious: Yes (Hospitalization)
  Sender: EISAI
  Company Number: CO-Eisai-EC-2025-181700

PATIENT
  Age: 60 Year
  Sex: Female
  Weight: 49.0 kg

DRUGS (6)
  1. LENVIMA [Suspect]
     Active Substance: LENVATINIB
     Indication: Thyroid cancer
     Dosage: 7 MONTHS 27 DAYS
     Route: 048
     Dates: start: 20231005, end: 20240531
  2. LENVIMA [Suspect]
     Active Substance: LENVATINIB
     Dosage: 7 MONTHS 27 DAYS
     Route: 048
     Dates: start: 20240628, end: 20240701
  3. LENVIMA [Suspect]
     Active Substance: LENVATINIB
     Dosage: 7 MONTHS 27 DAYS
     Route: 048
     Dates: start: 20240703, end: 20241031
  4. LENVIMA [Suspect]
     Active Substance: LENVATINIB
     Dosage: 7 MONTHS 27 DAYS
     Route: 048
     Dates: start: 20241101, end: 20241120
  5. LENVIMA [Suspect]
     Active Substance: LENVATINIB
     Dosage: 7 MONTHS 27 DAYS
     Route: 048
     Dates: start: 20241121, end: 20241121
  6. LENVIMA [Suspect]
     Active Substance: LENVATINIB
     Dosage: 7 MONTHS 27 DAYS
     Route: 048
     Dates: start: 20241122, end: 20241223

REACTIONS (9)
  - Pleural effusion [Not Recovered/Not Resolved]
  - Dyspnoea [Not Recovered/Not Resolved]
  - Thyroglobulin increased [Not Recovered/Not Resolved]
  - Influenza [Unknown]
  - Cough [Not Recovered/Not Resolved]
  - Pyrexia [Recovered/Resolved]
  - Headache [Not Recovered/Not Resolved]
  - Hypertension [Not Recovered/Not Resolved]
  - Impaired healing [Not Recovered/Not Resolved]

NARRATIVE: CASE EVENT DATE: 20241101
